FAERS Safety Report 7186419-7 (Version None)
Quarter: 2010Q4

REPORT INFORMATION
  Report Type: 
  Country: None (occurrence: None)
  Receive Date: 20101222
  Receipt Date: 20100621
  Transmission Date: 20110411
  Serious: No
  Sender: FDA-Public Use
  Company Number: US-AMGEN-KDL419943

PATIENT

DRUGS (2)
  1. ENBREL [Suspect]
     Indication: PSORIASIS
     Dosage: 50 MG, 2 TIMES/WK
     Route: 058
     Dates: start: 20040326
  2. ENBREL [Suspect]
     Indication: PSORIATIC ARTHROPATHY

REACTIONS (14)
  - ACCIDENT [None]
  - CHEST INJURY [None]
  - CONTUSION [None]
  - EAR INFECTION [None]
  - FALL [None]
  - HEAD INJURY [None]
  - INJECTION SITE HAEMATOMA [None]
  - INJURY [None]
  - JOINT INJURY [None]
  - MUSCLE HAEMORRHAGE [None]
  - NECK INJURY [None]
  - PSORIASIS [None]
  - PSORIATIC ARTHROPATHY [None]
  - STRESS [None]
